FAERS Safety Report 14789462 (Version 1)
Quarter: 2018Q2

REPORT INFORMATION
  Report Type: Spontaneous
  Country: US (occurrence: US)
  Receive Date: 20180423
  Receipt Date: 20180423
  Transmission Date: 20180711
  Serious: No
  Sender: FDA-Public Use
  Company Number: US-TEVA-2018-US-883406

PATIENT

DRUGS (1)
  1. ESTRADIOL. [Suspect]
     Active Substance: ESTRADIOL
     Route: 065

REACTIONS (4)
  - Dysmenorrhoea [Unknown]
  - Product substitution issue [Unknown]
  - Vaginal haemorrhage [Unknown]
  - Product use issue [Unknown]
